FAERS Safety Report 12564609 (Version 3)
Quarter: 2016Q3

REPORT INFORMATION
  Report Type: Spontaneous
  Country: US (occurrence: US)
  Receive Date: 20160718
  Receipt Date: 20160908
  Transmission Date: 20161109
  Serious: Yes (Other)
  Sender: FDA-Public Use
  Company Number: US-ROCHE-1794193

PATIENT
  Age: 64 Year
  Sex: Male
  Weight: 79.5 kg

DRUGS (5)
  1. PANTOPRAZOLE [Concomitant]
     Active Substance: PANTOPRAZOLE SODIUM
     Route: 048
     Dates: start: 20130322
  2. BABY ASPIRIN [Concomitant]
     Active Substance: ASPIRIN
  3. PEGASYS [Suspect]
     Active Substance: PEGINTERFERON ALFA-2A
     Indication: ESSENTIAL THROMBOCYTHAEMIA
     Dosage: 0.125ML/45MG FOR TWO WEEKS THEN 0.25ML/90 MG AND THEN 0.5ML/180MG
     Route: 058
     Dates: start: 20160607, end: 20160719
  4. CIALIS [Concomitant]
     Active Substance: TADALAFIL
     Dosage: AS REQUIRED
     Route: 048
     Dates: start: 20151230
  5. TRAZODONE [Concomitant]
     Active Substance: TRAZODONE HYDROCHLORIDE
     Dosage: AS REQUIRED
     Route: 048

REACTIONS (8)
  - Splenomegaly [Not Recovered/Not Resolved]
  - Discomfort [Not Recovered/Not Resolved]
  - Tenderness [Recovering/Resolving]
  - White blood cell count decreased [Not Recovered/Not Resolved]
  - Neutropenia [Recovering/Resolving]
  - Myalgia [Unknown]
  - Pain [Not Recovered/Not Resolved]
  - Headache [Unknown]

NARRATIVE: CASE EVENT DATE: 20160613
